FAERS Safety Report 8539539-6 (Version None)
Quarter: 2012Q3

REPORT INFORMATION
  Report Type: 
  Country: None (occurrence: None)
  Receive Date: 20120726
  Receipt Date: 20120719
  Transmission Date: 20120928
  Serious: Yes (Hospitalization, Other)
  Sender: FDA-Public Use
  Company Number: FR-ELI_LILLY_AND_COMPANY-FR201207005775

PATIENT
  Sex: Male

DRUGS (11)
  1. ALIMTA [Suspect]
     Indication: LUNG ADENOCARCINOMA METASTATIC
     Dosage: 1000 MG
     Route: 042
     Dates: start: 20111205, end: 20120208
  2. PLAVIX [Concomitant]
  3. RABEPRAZOLE SODIUM [Concomitant]
  4. ALIMTA [Suspect]
     Dosage: 800 MG, UNK
     Dates: start: 20120308
  5. GLUCOPHAGE [Concomitant]
  6. VALSARTAN [Concomitant]
  7. ATORVASTATIN [Concomitant]
  8. CISPLATIN [Concomitant]
     Dosage: 150 MG, UNK
     Dates: start: 20111205, end: 20111226
  9. AMARYL [Concomitant]
  10. FOLIC ACID [Concomitant]
  11. NICARDIPINE HCL [Concomitant]

REACTIONS (8)
  - INTERSTITIAL LUNG DISEASE [None]
  - LUNG INFECTION [None]
  - PLEURAL EFFUSION [None]
  - FEBRILE NEUTROPENIA [None]
  - ACUTE RESPIRATORY FAILURE [None]
  - ACUTE RESPIRATORY DISTRESS SYNDROME [None]
  - ANAEMIA [None]
  - SEPTIC SHOCK [None]
